FAERS Safety Report 22280354 (Version 1)
Quarter: 2023Q2

REPORT INFORMATION
  Report Type: Spontaneous
  Country: JP (occurrence: JP)
  Receive Date: 20230503
  Receipt Date: 20230503
  Transmission Date: 20230722
  Serious: Yes (Other)
  Sender: FDA-Public Use
  Company Number: JP-KYOWAKIRIN-2023AKK005963

PATIENT

DRUGS (8)
  1. PEGFILGRASTIM [Suspect]
     Active Substance: PEGFILGRASTIM
     Indication: Febrile neutropenia
     Dosage: UNK
     Route: 058
  2. PEGFILGRASTIM [Suspect]
     Active Substance: PEGFILGRASTIM
     Indication: Neutropenia
  3. FILGRASTIM [Suspect]
     Active Substance: FILGRASTIM
     Indication: Febrile neutropenia
     Dosage: UNK
     Route: 065
  4. FLUOROURACIL [Suspect]
     Active Substance: FLUOROURACIL
     Indication: Bile duct cancer
     Dosage: 400 MG/M2, BOLUS INFUSION,EACH ONCE DAILY ON DAY 1
     Route: 040
  5. FLUOROURACIL [Suspect]
     Active Substance: FLUOROURACIL
     Dosage: 2400 MG/M2, ON DAY 1 OVER 46 H
     Route: 065
  6. OXALIPLATIN [Suspect]
     Active Substance: OXALIPLATIN
     Indication: Bile duct cancer
     Dosage: 85 MG/M2, OVER 2 H
     Route: 065
  7. IRINOTECAN [Suspect]
     Active Substance: IRINOTECAN
     Indication: Bile duct cancer
     Dosage: 180 MG/M2, OVER 90 MIN,
     Route: 065
  8. LEUCOVORIN CALCIUM [Suspect]
     Active Substance: LEUCOVORIN CALCIUM
     Indication: Bile duct cancer
     Dosage: 400 MILLIGRAM/SQ. METER, Q2WK
     Route: 065

REACTIONS (26)
  - Cholinergic syndrome [Unknown]
  - Neutropenia [Unknown]
  - Febrile neutropenia [Unknown]
  - Leukopenia [Unknown]
  - Thrombocytopenia [Unknown]
  - Biliary tract infection [Unknown]
  - Hypertension [Unknown]
  - Hiccups [Unknown]
  - Hypoalbuminaemia [Unknown]
  - Anaemia [Unknown]
  - Nausea [Unknown]
  - Diarrhoea [Unknown]
  - Peripheral sensory neuropathy [Unknown]
  - Decreased appetite [Unknown]
  - Constipation [Unknown]
  - Alopecia [Unknown]
  - Stomatitis [Unknown]
  - Fatigue [Unknown]
  - Aspartate aminotransferase increased [Unknown]
  - Alanine aminotransferase increased [Unknown]
  - Gamma-glutamyltransferase increased [Unknown]
  - Blood alkaline phosphatase increased [Unknown]
  - Proteinuria [Unknown]
  - Therapeutic procedure [Unknown]
  - Off label use [Unknown]
  - Off label use [Unknown]
